FAERS Safety Report 8475547 (Version 4)
Quarter: 2013Q2

REPORT INFORMATION
  Report Type: Spontaneous
  Country: US (occurrence: US)
  Receive Date: 20120326
  Receipt Date: 20130402
  Transmission Date: 20140414
  Serious: Yes (Death, Other)
  Sender: FDA-Public Use
  Company Number: US-ELI_LILLY_AND_COMPANY-US201202004813

PATIENT
  Age: 82 Year
  Sex: Female
  Weight: 61.68 kg

DRUGS (10)
  1. FORTEO [Suspect]
     Indication: OSTEOPOROSIS
     Dosage: 20 UG, QD
     Route: 065
     Dates: start: 201110
  2. FORTEO [Suspect]
     Dosage: 20 UG, QD
     Route: 065
  3. FORTEO [Suspect]
     Dosage: 20 UG, QD
     Route: 065
  4. FORTEO [Suspect]
     Dosage: 20 UG, QD
  5. FORTEO [Suspect]
     Dosage: 20 UG, QD
  6. LYRICA [Concomitant]
  7. BABY ASPIRIN [Concomitant]
  8. CARBIDOPA [Concomitant]
  9. FUROSEMIDE [Concomitant]
  10. ROFLUMILAST [Concomitant]

REACTIONS (8)
  - Chronic obstructive pulmonary disease [Fatal]
  - Pelvic fracture [Recovering/Resolving]
  - Fall [Recovering/Resolving]
  - Visual impairment [Unknown]
  - Fall [Recovered/Resolved]
  - Myalgia [Not Recovered/Not Resolved]
  - Eye disorder [Unknown]
  - Arthralgia [Not Recovered/Not Resolved]
